FAERS Safety Report 14945078 (Version 2)
Quarter: 2018Q3

REPORT INFORMATION
  Report Type: Spontaneous
  Country: JP (occurrence: JP)
  Receive Date: 20180529
  Receipt Date: 20180703
  Transmission Date: 20181010
  Serious: Yes (Death, Other)
  Sender: FDA-Public Use
  Company Number: JP-ROCHE-2130687

PATIENT
  Age: 57 Year
  Sex: Female
  Weight: 54 kg

DRUGS (7)
  1. AVASTIN [Suspect]
     Active Substance: BEVACIZUMAB
     Route: 041
     Dates: start: 20120803, end: 20121005
  2. AVASTIN [Suspect]
     Active Substance: BEVACIZUMAB
     Route: 041
     Dates: start: 20130104, end: 20130201
  3. TS?1 [Suspect]
     Active Substance: GIMERACIL\OTERACIL\TEGAFUR
     Indication: RECTAL CANCER
     Dosage: 2 DAYS ADMINISTRATION FOLLOWED BY 2 DAYS REST
     Route: 048
     Dates: start: 20120803, end: 20121102
  4. AVASTIN [Suspect]
     Active Substance: BEVACIZUMAB
     Indication: RECTAL CANCER
     Route: 041
     Dates: start: 2012
  5. AVASTIN [Suspect]
     Active Substance: BEVACIZUMAB
     Route: 041
     Dates: start: 20161111, end: 20180420
  6. IRINOTECAN HYDROCHLORIDE TRIHYDRATE [Suspect]
     Active Substance: IRINOTECAN HYDROCHLORIDE
     Indication: RECTAL CANCER
     Route: 041
     Dates: start: 20130104, end: 20180119
  7. LONSURF [Suspect]
     Active Substance: TIPIRACIL HYDROCHLORIDE\TRIFLURIDINE
     Indication: RECTAL CANCER
     Dosage: 5 DAYS ADMINISTRATION FOLLOWED BY 2 DAYS REST, AND AFTER REPEATED IT TWICE, REST FOR 14 DAYS.
     Route: 048
     Dates: start: 20180216, end: 20180420

REACTIONS (5)
  - Aortic dissection [Fatal]
  - Platelet count decreased [Recovering/Resolving]
  - Renal cyst [Unknown]
  - White blood cell count decreased [Recovering/Resolving]
  - Hepatic cyst [Unknown]

NARRATIVE: CASE EVENT DATE: 20120831
